FAERS Safety Report 21619818 (Version 1)
Quarter: 2022Q4

REPORT INFORMATION
  Report Type: Spontaneous
  Country: US (occurrence: US)
  Receive Date: 20221121
  Receipt Date: 20221121
  Transmission Date: 20230112
  Serious: No
  Sender: FDA-Public Use
  Company Number: US-BRISTOL-MYERS SQUIBB COMPANY-2022-139811

PATIENT
  Age: 82 Year
  Sex: Male
  Weight: 101.6 kg

DRUGS (1)
  1. ONUREG [Suspect]
     Active Substance: AZACITIDINE
     Indication: Acute myeloid leukaemia
     Dosage: FREQ: DAILY FOR 7 DAYS
     Route: 048

REACTIONS (1)
  - Neutrophil count decreased [Unknown]
